FAERS Safety Report 7319255-9 (Version None)
Quarter: 2011Q1

REPORT INFORMATION
  Report Type: 
  Country: None (occurrence: None)
  Receive Date: 20110228
  Receipt Date: 20101203
  Transmission Date: 20110831
  Serious: No
  Sender: FDA-Public Use
  Company Number: A0757084A

PATIENT
  Sex: Male

DRUGS (2)
  1. LAMICTAL [Suspect]
     Route: 065
  2. LOVAZA [Suspect]
     Dosage: 1G UNKNOWN
     Route: 048
     Dates: start: 20060601

REACTIONS (4)
  - IRRITABILITY [None]
  - TREATMENT NONCOMPLIANCE [None]
  - DISTURBANCE IN ATTENTION [None]
  - ANGER [None]
